FAERS Safety Report 6176090-5 (Version None)
Quarter: 2009Q2

REPORT INFORMATION
  Report Type: 
  Country: None (occurrence: None)
  Receive Date: 20090501
  Receipt Date: 20090420
  Transmission Date: 20091009
  Serious: Yes (Hospitalization, Other)
  Sender: FDA-Public Use
  Company Number: FR-JNJFOC-20090401756

PATIENT
  Age: 17 Year
  Sex: Female
  Weight: 53 kg

DRUGS (4)
  1. REMICADE [Suspect]
     Dosage: STARTED 4 YEARS AGO
     Route: 042
  2. REMICADE [Suspect]
     Indication: CROHN'S DISEASE
     Dosage: STARTED 4 YEARS AGO
     Route: 042
  3. LODOID [Concomitant]
     Indication: DERMATITIS ATOPIC
     Route: 061
     Dates: start: 20080701
  4. DERMOVAL [Concomitant]
     Indication: DERMATITIS ATOPIC
     Route: 061

REACTIONS (3)
  - CROHN'S DISEASE [None]
  - DERMATITIS ATOPIC [None]
  - HERPES ZOSTER [None]
